FAERS Safety Report 18349717 (Version 1)
Quarter: 2020Q4

REPORT INFORMATION
  Report Type: Other
  Country: DE (occurrence: DE)
  Receive Date: 20201006
  Receipt Date: 20201006
  Transmission Date: 20210114
  Serious: Yes (Congenital Anomaly, Other)
  Sender: FDA-Public Use
  Company Number: DE-MACLEODS PHARMACEUTICALS US LTD-MAC2020028286

PATIENT

DRUGS (10)
  1. PRESINOL [Concomitant]
     Active Substance: METHYLDOPA
     Indication: HYPERTENSION
     Dosage: 250 MG, BID, 18.4. - 32. GESTATIONAL WEEK
     Route: 064
     Dates: start: 20190428, end: 20190731
  2. ARIPIPRAZOLE. [Concomitant]
     Active Substance: ARIPIPRAZOLE
     Indication: SCHIZOPHRENIA
     Dosage: 5 MILLIGRAM, QD, 0. - 5.5. GESTATIONAL WEEK
     Route: 064
     Dates: start: 20181219, end: 20190128
  3. QUETIAPINE. [Suspect]
     Active Substance: QUETIAPINE
     Indication: PRODUCT USED FOR UNKNOWN INDICATION
     Dosage: UNK, 0. - 32. GESTATIONAL WEEK
     Route: 064
     Dates: start: 20181219, end: 20190731
  4. VALSARTAN. [Suspect]
     Active Substance: VALSARTAN
     Indication: PRODUCT USED FOR UNKNOWN INDICATION
     Dosage: 80 MILLIGRAM, QD, 0. - 8. GESTATIONAL WEEK
     Route: 064
  5. NIFEDIPIN [Concomitant]
     Active Substance: NIFEDIPINE
     Indication: HYPERTENSION
     Dosage: 5 MILLIGRAM, TID, 22. - 32. GESTATIONAL WEEK
     Route: 064
  6. HCT [Suspect]
     Active Substance: HYDROCHLOROTHIAZIDE
     Indication: PRODUCT USED FOR UNKNOWN INDICATION
     Dosage: 25 MILLIGRAM, QD, 0. - 8. GESTATIONAL WEEK
     Route: 064
  7. ACETAZOLAMIDE. [Concomitant]
     Active Substance: ACETAZOLAMIDE
     Indication: IDIOPATHIC INTRACRANIAL HYPERTENSION
     Dosage: UNK, 0. - 5.5. GESTATIONAL WEEK
     Route: 064
     Dates: start: 20181219, end: 20190128
  8. ESCITALOPRAM [Concomitant]
     Active Substance: ESCITALOPRAM OXALATE
     Indication: DEPRESSION
     Dosage: 5 MILLIGRAM, QD, 13. - 20.1. GESTATIONAL WEEK
     Route: 064
  9. DULOXETINE. [Suspect]
     Active Substance: DULOXETINE
     Indication: PRODUCT USED FOR UNKNOWN INDICATION
     Dosage: 90 MILLIGRAM, QD, 90 [MG/D (BIS 60) ], 0. - 32. GESTATIONAL WEEK
     Route: 064
     Dates: start: 20181219, end: 20190731
  10. BISOPROLOL 5 MG [Suspect]
     Active Substance: BISOPROLOL
     Indication: PRODUCT USED FOR UNKNOWN INDICATION
     Dosage: 5 MILLIGRAM, QD, 0. - 8. GESTATIONAL WEEK
     Route: 064

REACTIONS (9)
  - Foetal growth restriction [Unknown]
  - Ventricular septal defect [Recovering/Resolving]
  - Congenital cerebral cyst [Unknown]
  - Atrial septal defect [Recovered/Resolved]
  - Single umbilical artery [Unknown]
  - Neutropenia [Unknown]
  - Foetal exposure during pregnancy [Unknown]
  - Foetal heart rate deceleration abnormality [Unknown]
  - Congenital hypothyroidism [Unknown]

NARRATIVE: CASE EVENT DATE: 20190731
